FAERS Safety Report 15744989 (Version 2)
Quarter: 2019Q2

REPORT INFORMATION
  Report Type: Spontaneous
  Country: US (occurrence: US)
  Receive Date: 20181220
  Receipt Date: 20190523
  Transmission Date: 20190711
  Serious: Yes (Other)
  Sender: FDA-Public Use
  Company Number: US-GLAXOSMITHKLINE-US2018GSK229705

PATIENT
  Sex: Female

DRUGS (3)
  1. LANSOPRAZOLE. [Suspect]
     Active Substance: LANSOPRAZOLE
     Indication: GASTROOESOPHAGEAL REFLUX DISEASE
     Dosage: 15 MG, QD
     Route: 065
  2. PREVACID [Suspect]
     Active Substance: LANSOPRAZOLE
     Indication: GASTROOESOPHAGEAL REFLUX DISEASE
     Dosage: 30 MG, QD
     Route: 048
  3. PREVACID [Suspect]
     Active Substance: LANSOPRAZOLE
     Indication: GASTROOESOPHAGEAL REFLUX DISEASE
     Dosage: 15 MG, QD
     Route: 065

REACTIONS (14)
  - Tubulointerstitial nephritis [Unknown]
  - Nephrolithiasis [Unknown]
  - Renal impairment [Unknown]
  - Pyelonephritis [Unknown]
  - Urinary incontinence [Unknown]
  - Proteinuria [Unknown]
  - Nephrogenic anaemia [Unknown]
  - Chronic kidney disease [Unknown]
  - Nephropathy [Unknown]
  - Renal failure [Unknown]
  - Reflux nephropathy [Unknown]
  - Blood creatinine increased [Unknown]
  - Nephrosclerosis [Unknown]
  - Diabetic nephropathy [Unknown]
